FAERS Safety Report 7318680-X (Version None)
Quarter: 2011Q1

REPORT INFORMATION
  Report Type: 
  Country: None (occurrence: None)
  Receive Date: 20110228
  Receipt Date: 20110225
  Transmission Date: 20110831
  Serious: Yes (Life-Threatening)
  Sender: FDA-Public Use
  Company Number: IT-SANOFI-AVENTIS-2011SA009118

PATIENT
  Age: 68 Year
  Sex: Female

DRUGS (4)
  1. ELOXATIN [Suspect]
     Route: 042
     Dates: start: 20110207, end: 20110207
  2. LEDERFOLIN [Concomitant]
     Route: 065
  3. FLUOROURACIL [Concomitant]
     Route: 065
  4. ELOXATIN [Suspect]
     Indication: RECTAL CANCER
     Route: 042
     Dates: start: 20100714, end: 20100714

REACTIONS (2)
  - SHOCK [None]
  - BLINDNESS TRANSIENT [None]
